FAERS Safety Report 16659211 (Version 1)
Quarter: 2019Q3

REPORT INFORMATION
  Report Type: Spontaneous
  Country: US (occurrence: US)
  Receive Date: 20190802
  Receipt Date: 20190802
  Transmission Date: 20191004
  Serious: Yes (Other)
  Sender: FDA-Public Use
  Company Number: US-SUN PHARMACEUTICAL INDUSTRIES LTD-2018R1-195528

PATIENT
  Age: 69 Year
  Sex: Male

DRUGS (5)
  1. ZOLPIDEM [Concomitant]
     Active Substance: ZOLPIDEM TARTRATE
     Indication: INSOMNIA
     Dosage: 6.25 MILLIGRAM, QD (HOUR OF SLEEP)
  2. BUSPIRONE [Concomitant]
     Active Substance: BUSPIRONE HYDROCHLORIDE
     Indication: MAJOR DEPRESSION
     Dosage: 30 MILLIGRAM, BID
     Route: 065
  3. BUPROPION. [Suspect]
     Active Substance: BUPROPION
     Indication: GENERALISED ANXIETY DISORDER
     Dosage: 150 MILLIGRAM, BID
     Route: 065
  4. METHYLENE BLUE. [Suspect]
     Active Substance: METHYLENE BLUE
     Indication: PRODUCT USED FOR UNKNOWN INDICATION
     Dosage: METHYLENE BLUE-CONTAINING ORALLY-ADMINISTERED URINARY ANALGESIC
     Route: 048
  5. VENLAFAXINE [Suspect]
     Active Substance: VENLAFAXINE HYDROCHLORIDE
     Indication: MAJOR DEPRESSION
     Dosage: 37.5 MILLIGRAM, BID
     Route: 065

REACTIONS (5)
  - Suicidal ideation [Unknown]
  - Serotonin syndrome [Unknown]
  - Irritability [Unknown]
  - Anger [Unknown]
  - Condition aggravated [Unknown]
